FAERS Safety Report 9616988 (Version 2)
Quarter: 2013Q4

REPORT INFORMATION
  Report Type: Spontaneous
  Country: FR (occurrence: FR)
  Receive Date: 20131011
  Receipt Date: 20131011
  Transmission Date: 20140711
  Serious: Yes (Death, Hospitalization)
  Sender: FDA-Public Use
  Company Number: FR-SA-CLOF-1000331

PATIENT
  Age: 6 Year
  Sex: Female
  Weight: 16.2 kg

DRUGS (14)
  1. EVOLTRA [Suspect]
     Indication: ACUTE LYMPHOCYTIC LEUKAEMIA RECURRENT
     Route: 042
     Dates: start: 20080919, end: 20080923
  2. ENDOXAN [Concomitant]
     Indication: ACUTE LYMPHOCYTIC LEUKAEMIA RECURRENT
     Route: 065
     Dates: start: 20080919, end: 20080923
  3. ETOPOSIDE [Concomitant]
     Indication: ACUTE LYMPHOCYTIC LEUKAEMIA RECURRENT
     Route: 065
     Dates: start: 20080919, end: 20080923
  4. TAZOCILLINE [Concomitant]
     Indication: FEBRILE BONE MARROW APLASIA
  5. AMIKLIN [Concomitant]
     Indication: FEBRILE BONE MARROW APLASIA
  6. FASTURTEC [Concomitant]
     Indication: CAPILLARY LEAK SYNDROME
  7. NALBUPHINE HYDROCHLORIDE [Concomitant]
     Indication: PAIN
  8. ZOVIRAX [Concomitant]
     Indication: MUCOSAL INFLAMMATION
  9. ZOPHREN [Concomitant]
     Indication: VOMITING
  10. PERFALGAN [Concomitant]
     Indication: PAIN
  11. PLITICAN [Concomitant]
     Indication: VOMITING
  12. INEXIUM [Concomitant]
  13. LASILIX [Concomitant]
     Indication: RENAL FAILURE
  14. BACTRIM [Concomitant]

REACTIONS (4)
  - Renal failure acute [Fatal]
  - Febrile bone marrow aplasia [Fatal]
  - Multi-organ failure [Fatal]
  - Capillary leak syndrome [Fatal]
